FAERS Safety Report 4731468-9 (Version None)
Quarter: 2005Q3

REPORT INFORMATION
  Report Type: 
  Country: None (occurrence: None)
  Receive Date: 20050801
  Receipt Date: 20050801
  Transmission Date: 20060218
  Serious: Yes (Life-Threatening, Hospitalization)
  Sender: FDA-Public Use
  Company Number: None

PATIENT
  Age: 55 Year
  Sex: Female
  Weight: 61 kg

DRUGS (2)
  1. PROGRAF [Suspect]
     Indication: RENAL TRANSPLANT
     Dosage: 3MG  BID   ORAL
     Route: 048
     Dates: start: 20040101, end: 20050110
  2. RAPAMUNE [Suspect]
     Indication: RENAL TRANSPLANT
     Dosage: 3MG   DAILY  ORAL
     Route: 048
     Dates: start: 20040101, end: 20050110

REACTIONS (5)
  - DEHYDRATION [None]
  - DIARRHOEA [None]
  - DRUG LEVEL INCREASED [None]
  - PNEUMONIA [None]
  - RENAL FAILURE ACUTE [None]
